FAERS Safety Report 9415446 (Version 1)
Quarter: 2013Q3

REPORT INFORMATION
  Report Type: Spontaneous
  Country: US (occurrence: US)
  Receive Date: 20130723
  Receipt Date: 20130723
  Transmission Date: 20140515
  Serious: Yes (Hospitalization, Other)
  Sender: FDA-Public Use
  Company Number: US-TEVA-419704USA

PATIENT
  Age: 52 Year
  Sex: Female

DRUGS (6)
  1. FLUCONAZOLE [Suspect]
     Indication: IMMUNE SYSTEM DISORDER
     Route: 065
  2. PHENYTOIN [Interacting]
     Indication: STATUS EPILEPTICUS
     Dosage: PROGRESSIVELY INCREASING DOSES
     Route: 042
  3. TACROLIMUS [Suspect]
     Indication: LIVER TRANSPLANT REJECTION
     Dosage: INCREASING DOSES
     Route: 065
  4. FOSPHENYTOIN [Concomitant]
     Indication: STATUS EPILEPTICUS
     Route: 042
  5. VANCOMYCIN [Concomitant]
     Indication: IMMUNE SYSTEM DISORDER
     Route: 065
  6. MEROPENEM [Concomitant]
     Indication: IMMUNE SYSTEM DISORDER
     Route: 065

REACTIONS (5)
  - Electrocardiogram QRS complex prolonged [Recovered/Resolved]
  - Electrocardiogram QT prolonged [Recovered/Resolved]
  - Drug interaction [Recovered/Resolved]
  - Status epilepticus [Unknown]
  - Toxicity to various agents [Unknown]
